FAERS Safety Report 4548897-9 (Version None)
Quarter: 2004Q4

REPORT INFORMATION
  Report Type: 
  Country: None (occurrence: None)
  Receive Date: 20041227
  Receipt Date: 20041123
  Transmission Date: 20050328
  Serious: No
  Sender: FDA-Public Use
  Company Number: 04P-163-0281273-00

PATIENT
  Age: 68 Year
  Sex: Female
  Weight: 58.9676 kg

DRUGS (13)
  1. HUMIRA [Suspect]
     Indication: RHEUMATOID ARTHRITIS
     Dosage: 40 MG, 1 IN 2 WK, SUBCUTANEOUS
     Route: 058
     Dates: start: 20041122
  2. GLIMEPIRIDE [Concomitant]
  3. ZOLPIDEM TARTRATE [Concomitant]
  4. FOLIC ACID [Concomitant]
  5. METFORMIN HCL [Concomitant]
  6. HYDROCHLOROTHIAZIDE [Concomitant]
  7. BENAZEPRIL HCL [Concomitant]
  8. POTASSIUM CHLORIDE [Concomitant]
  9. ESTROGENS CONJUGATED [Concomitant]
  10. PANTOPRAZOLE [Concomitant]
  11. SIMVASTATIN [Concomitant]
  12. MAGNESIUM [Concomitant]
  13. ULTRACET [Concomitant]

REACTIONS (3)
  - INJECTION SITE BURNING [None]
  - INSOMNIA [None]
  - NAUSEA [None]
